FAERS Safety Report 5625271-5 (Version None)
Quarter: 2008Q1

REPORT INFORMATION
  Report Type: 
  Country: None (occurrence: None)
  Receive Date: 20080208
  Receipt Date: 20080131
  Transmission Date: 20080703
  Serious: Yes (Other)
  Sender: FDA-Public Use
  Company Number: 2005-04-1090

PATIENT
  Age: 43 Year
  Sex: Male

DRUGS (2)
  1. RIBAVIRIN [Suspect]
     Indication: HEPATITIS C
     Dosage: 600 MG; QD; PO
     Route: 048
  2. INTERFERON ALFA-2A (INTERFERON ALFA-2A) [Suspect]
     Indication: HEPATITIS C
     Dosage: ; TIW; IV, 6 MIU; QD; IV, 3 MIU; TIW; IV
     Route: 042

REACTIONS (4)
  - FACIAL PALSY [None]
  - HYPERACUSIS [None]
  - PARAESTHESIA [None]
  - PARAESTHESIA ORAL [None]
